FAERS Safety Report 12686328 (Version 1)
Quarter: 2016Q3

REPORT INFORMATION
  Report Type: Spontaneous
  Country: US (occurrence: US)
  Receive Date: 20160825
  Receipt Date: 20160825
  Transmission Date: 20161109
  Serious: No
  Sender: FDA-Public Use
  Company Number: US-JAZZ-2016-US-006835

PATIENT
  Age: 28 Year
  Sex: Male
  Weight: 113.38 kg

DRUGS (12)
  1. XYREM [Suspect]
     Active Substance: SODIUM OXYBATE
     Indication: NARCOLEPSY
     Dosage: 2 G, BID
     Route: 048
     Dates: start: 20160418
  2. MELATONIN [Concomitant]
     Active Substance: MELATONIN
  3. VITAMIN D [Concomitant]
     Active Substance: CHOLECALCIFEROL
  4. XYREM [Suspect]
     Active Substance: SODIUM OXYBATE
     Indication: SOMNOLENCE
     Dosage: 1.5 G, BID
     Route: 048
     Dates: start: 201603, end: 201604
  5. LAMICTAL [Concomitant]
     Active Substance: LAMOTRIGINE
     Indication: DEPRESSION
  6. ADDERALL [Concomitant]
     Active Substance: AMPHETAMINE ASPARTATE\AMPHETAMINE SULFATE\DEXTROAMPHETAMINE SACCHARATE\DEXTROAMPHETAMINE SULFATE
     Indication: NARCOLEPSY
  7. PRISTIQ EXTENDED-RELEASE [Concomitant]
     Active Substance: DESVENLAFAXINE SUCCINATE
     Indication: DEPRESSION
  8. FLONASE [Concomitant]
     Active Substance: FLUTICASONE PROPIONATE
  9. UNISOM SLEEP [Concomitant]
  10. PRISTIQ EXTENDED-RELEASE [Concomitant]
     Active Substance: DESVENLAFAXINE SUCCINATE
     Indication: ANXIETY
  11. LAMICTAL [Concomitant]
     Active Substance: LAMOTRIGINE
     Indication: ANXIETY
  12. VITAMIN B12 [Concomitant]
     Active Substance: CYANOCOBALAMIN

REACTIONS (2)
  - Depression [Not Recovered/Not Resolved]
  - Anxiety [Not Recovered/Not Resolved]

NARRATIVE: CASE EVENT DATE: 201603
